FAERS Safety Report 5786015-X (Version None)
Quarter: 2008Q2

REPORT INFORMATION
  Report Type: 
  Country: None (occurrence: None)
  Receive Date: 20080624
  Receipt Date: 20080617
  Transmission Date: 20081010
  Serious: Yes (Hospitalization)
  Sender: FDA-Public Use
  Company Number: PHHO2008US05615

PATIENT
  Sex: Female
  Weight: 90.7 kg

DRUGS (32)
  1. ZELMAC HTF+TAB [Suspect]
     Indication: IRRITABLE BOWEL SYNDROME
     Dosage: 12MG
     Route: 048
     Dates: start: 20080325, end: 20080417
  2. PROLIXIN [Suspect]
  3. PSYCHIATRIC THERAPY [Suspect]
  4. AMITRIPTYLINE HCL [Concomitant]
  5. AMITIZA [Concomitant]
  6. LEVOTHYROXINE SODIUM [Concomitant]
  7. MAGNESIUM CITRATE [Concomitant]
  8. VITAMIN D [Concomitant]
  9. CALCIUM [Concomitant]
  10. COGENTIN [Concomitant]
  11. CREON [Concomitant]
  12. DEPAKOTE [Concomitant]
  13. DEPLIN [Concomitant]
  14. DOCUSATE [Concomitant]
  15. FLAXSEED OIL [Concomitant]
  16. LACTULOSE [Concomitant]
  17. GLUCOSAMINE W/CHONDROITIN [Concomitant]
  18. VITAMIN CAP [Concomitant]
  19. NEURONTIN [Concomitant]
  20. OMEGA 3 FISH OIL [Concomitant]
  21. PINDOLOL [Concomitant]
  22. PROAMATINE [Concomitant]
  23. RELAFEN [Concomitant]
  24. RISPERIDONE [Concomitant]
  25. ROZEREM [Concomitant]
  26. SYMMETREL [Concomitant]
  27. ASCORBIC ACID [Concomitant]
  28. ZYPREXA [Concomitant]
  29. ULTRAM [Concomitant]
  30. MAXALT [Concomitant]
  31. ZOMIG [Concomitant]
  32. VALERIAN [Concomitant]

REACTIONS (4)
  - DYSPNOEA EXERTIONAL [None]
  - LYMPHOEDEMA [None]
  - OEDEMA PERIPHERAL [None]
  - SWELLING [None]
